FAERS Safety Report 8523990-4 (Version None)
Quarter: 2012Q3

REPORT INFORMATION
  Report Type: 
  Country: None (occurrence: None)
  Receive Date: 20120720
  Receipt Date: 20120713
  Transmission Date: 20120928
  Serious: Yes (Hospitalization, Other)
  Sender: FDA-Public Use
  Company Number: BR-SANOFI-AVENTIS-2012SA050357

PATIENT
  Age: 60 Year
  Sex: Female
  Weight: 59 kg

DRUGS (9)
  1. ALENDRONATE SODIUM [Concomitant]
     Indication: OSTEOPOROSIS
     Dates: start: 19970101
  2. NEURONTIN [Concomitant]
     Indication: DIABETIC NEUROPATHY
     Dates: start: 20080101
  3. LANTUS [Suspect]
     Dosage: IN THE MORNING IN FASTING
     Route: 058
     Dates: start: 20040101
  4. ROSUVASTATIN [Concomitant]
     Dates: start: 20100101
  5. ASPIRIN [Concomitant]
     Dates: start: 20090101
  6. AUTOPEN 24 [Suspect]
     Indication: DEVICE THERAPY
     Dates: start: 20040101
  7. OMEPRAZOLE [Concomitant]
     Indication: GASTRIC DISORDER
     Dates: start: 20090101
  8. CALCIUM [Concomitant]
     Indication: OSTEOPOROSIS
     Dates: start: 19970101
  9. NOVORAPID [Concomitant]

REACTIONS (7)
  - CEREBROVASCULAR ACCIDENT [None]
  - EYE HAEMORRHAGE [None]
  - CAROTID ARTERY OCCLUSION [None]
  - CATARACT OPERATION [None]
  - VISUAL ACUITY REDUCED [None]
  - HYPOGLYCAEMIA [None]
  - THROMBOSIS [None]
